FAERS Safety Report 4994184-4 (Version None)
Quarter: 2006Q1

REPORT INFORMATION
  Report Type: 
  Country: None (occurrence: None)
  Receive Date: 20060313
  Receipt Date: 20050824
  Transmission Date: 20060701
  Serious: Yes (Hospitalization)
  Sender: FDA-Public Use
  Company Number: PHEH2005US09464

PATIENT
  Age: 10 Year
  Sex: Female
  Weight: 29.5 kg

DRUGS (2)
  1. TRILEPTAL [Suspect]
     Indication: AFFECTIVE DISORDER
     Dosage: 75 MG, BID,ORAL
     Route: 048
     Dates: end: 20050801
  2. RISPERDAL [Concomitant]

REACTIONS (4)
  - EYE SWELLING [None]
  - RASH ERYTHEMATOUS [None]
  - STEVENS-JOHNSON SYNDROME [None]
  - SWELLING FACE [None]
